FAERS Safety Report 25679491 (Version 2)
Quarter: 2025Q3

REPORT INFORMATION
  Report Type: Spontaneous
  Country: US (occurrence: US)
  Receive Date: 20250814
  Receipt Date: 20250828
  Transmission Date: 20251020
  Serious: No
  Sender: MSN LABORATORIES PRIVATE LIMITED
  Company Number: US-MSNLABS-2025MSNSPO02070

PATIENT

DRUGS (1)
  1. LOSARTAN POTASSIUM [Suspect]
     Active Substance: LOSARTAN POTASSIUM
     Indication: Blood pressure increased
     Dosage: ONE TIME AT NIGHT
     Route: 048
     Dates: start: 20250609, end: 20250610

REACTIONS (7)
  - Gait disturbance [Unknown]
  - Visual impairment [Unknown]
  - Respiratory tract congestion [Unknown]
  - Disorientation [Unknown]
  - Arthralgia [Unknown]
  - Cough [Unknown]
  - Dizziness [Unknown]

NARRATIVE: CASE EVENT DATE: 20250610
